FAERS Safety Report 7940765-5 (Version None)
Quarter: 2011Q4

REPORT INFORMATION
  Report Type: 
  Country: None (occurrence: None)
  Receive Date: 20111128
  Receipt Date: 20111123
  Transmission Date: 20120403
  Serious: Yes (Other)
  Sender: FDA-Public Use
  Company Number: BR-PFIZER INC-2011286669

PATIENT
  Age: 41 Year
  Sex: Female
  Weight: 58 kg

DRUGS (2)
  1. AEROLIN SPRAY [Concomitant]
     Indication: ASTHMA
     Dosage: UNK
  2. VARENICLINE TARTRATE [Suspect]
     Indication: SMOKING CESSATION THERAPY
     Dosage: 0.5 MG, 1X/DAY
     Route: 048
     Dates: start: 20111121

REACTIONS (8)
  - IMPATIENCE [None]
  - IRRITABILITY [None]
  - TOBACCO USER [None]
  - FEELING ABNORMAL [None]
  - HEADACHE [None]
  - AGGRESSION [None]
  - ANXIETY [None]
  - EMOTIONAL DISORDER [None]
